FAERS Safety Report 6597183-4 (Version None)
Quarter: 2010Q1

REPORT INFORMATION
  Report Type: 
  Country: None (occurrence: None)
  Receive Date: 20100223
  Receipt Date: 20100209
  Transmission Date: 20100710
  Serious: Yes (Hospitalization)
  Sender: FDA-Public Use
  Company Number: NL-MEDIMMUNE-MEDI-0010260

PATIENT
  Sex: Male

DRUGS (1)
  1. SYNAGIS [Suspect]
     Route: 030
     Dates: start: 20090910, end: 20091105

REACTIONS (4)
  - APNOEA [None]
  - DEVICE RELATED INFECTION [None]
  - EPILEPSY [None]
  - RESPIRATORY TRACT INFECTION [None]
